FAERS Safety Report 5927907-8 (Version None)
Quarter: 2008Q4

REPORT INFORMATION
  Report Type: 
  Country: None (occurrence: None)
  Receive Date: 20081023
  Receipt Date: 20081013
  Transmission Date: 20090506
  Serious: Yes (Hospitalization)
  Sender: FDA-Public Use
  Company Number: ES-BAYER-200828279GPV

PATIENT
  Age: 81 Year
  Sex: Male

DRUGS (6)
  1. ASPIRIN [Suspect]
     Indication: ACUTE MYOCARDIAL INFARCTION
     Route: 048
  2. DIGOXIN [Interacting]
     Indication: ATRIAL FIBRILLATION
     Route: 048
     Dates: end: 20080416
  3. NEOBRUFEN/ IBUPROFEN [Interacting]
     Indication: PAIN
     Route: 048
     Dates: start: 20080316, end: 20080416
  4. SEGURIL/ FUROSEMIDE [Interacting]
     Indication: CARDIAC FAILURE CHRONIC
     Route: 048
  5. ENALAPRIL MALEATE [Concomitant]
     Indication: HYPERTENSION
     Route: 048
  6. EMCONCOR/ BISOPROLOL [Concomitant]
     Indication: CARDIAC FAILURE CHRONIC
     Route: 048

REACTIONS (2)
  - RENAL FAILURE ACUTE [None]
  - THERAPEUTIC AGENT TOXICITY [None]
